FAERS Safety Report 15596158 (Version 1)
Quarter: 2018Q4

REPORT INFORMATION
  Report Type: Spontaneous
  Country: TW (occurrence: TW)
  Receive Date: 20181108
  Receipt Date: 20181108
  Transmission Date: 20190205
  Serious: Yes (Other)
  Sender: FDA-Public Use
  Company Number: TW-LUPIN PHARMACEUTICALS INC.-2018-07683

PATIENT
  Age: 54 Year
  Sex: Male

DRUGS (4)
  1. SIROLIMUS. [Interacting]
     Active Substance: SIROLIMUS
     Indication: IMMUNOSUPPRESSION
     Dosage: UNK
     Route: 065
  2. RIFAMPICIN [Suspect]
     Active Substance: RIFAMPIN
     Indication: DISSEMINATED TUBERCULOSIS
     Dosage: UNK UNK, QD (600 OR 300 MG)
     Route: 048
  3. ETHAMBUTOL [Suspect]
     Active Substance: ETHAMBUTOL HYDROCHLORIDE
     Indication: DISSEMINATED TUBERCULOSIS
     Dosage: UNK UNK, QD ( 800 OR 1200 MG)
     Route: 048
  4. ISONIAZID. [Suspect]
     Active Substance: ISONIAZID
     Indication: DISSEMINATED TUBERCULOSIS
     Dosage: 300 MG, QD
     Route: 048

REACTIONS (2)
  - Drug interaction [Unknown]
  - Transplant rejection [Unknown]
